FAERS Safety Report 17693747 (Version 1)
Quarter: 2020Q2

REPORT INFORMATION
  Report Type: Spontaneous
  Country: US (occurrence: US)
  Receive Date: 20200420
  Receipt Date: 20200420
  Transmission Date: 20200714
  Serious: Yes (Hospitalization, Other)
  Sender: FDA-Public Use
  Company Number: None

PATIENT
  Age: 69 Year
  Sex: Female

DRUGS (1)
  1. ENBREL [Suspect]
     Active Substance: ETANERCEPT
     Indication: PSORIASIS
     Dosage: ?          OTHER DOSE:50MG (1 PEN);?
     Route: 058
     Dates: start: 20180206

REACTIONS (2)
  - Ill-defined disorder [None]
  - Therapy interrupted [None]

NARRATIVE: CASE EVENT DATE: 202003
